FAERS Safety Report 13927626 (Version 1)
Quarter: 2017Q3

REPORT INFORMATION
  Report Type: Spontaneous
  Country: US (occurrence: US)
  Receive Date: 20170831
  Receipt Date: 20170831
  Transmission Date: 20171127
  Serious: No
  Sender: FDA-Public Use
  Company Number: None

PATIENT
  Age: 22 Year
  Sex: Female
  Weight: 63 kg

DRUGS (3)
  1. MELATONIN [Concomitant]
     Active Substance: MELATONIN
  2. TAKE ACTION [Suspect]
     Active Substance: LEVONORGESTREL
     Indication: CONTRACEPTION
     Dates: start: 20170828
  3. IBUPROFEN. [Concomitant]
     Active Substance: IBUPROFEN

REACTIONS (2)
  - Rash pruritic [None]
  - Rash [None]

NARRATIVE: CASE EVENT DATE: 20170828
